FAERS Safety Report 4591410-0 (Version None)
Quarter: 2005Q1

REPORT INFORMATION
  Report Type: 
  Country: None (occurrence: None)
  Receive Date: 20050223
  Receipt Date: 20050223
  Transmission Date: 20050727
  Serious: No
  Sender: FDA-Public Use
  Company Number: None

PATIENT
  Sex: Male
  Weight: 72.3034 kg

DRUGS (1)
  1. GM-CSF 250MCG/M2) [Suspect]
     Indication: PROSTATE CANCER
     Dosage: 250 MG QD X 14
     Dates: start: 20050215, end: 20050218

REACTIONS (1)
  - URINARY RETENTION [None]
